FAERS Safety Report 9450734 (Version 2)
Quarter: 2015Q4

REPORT INFORMATION
  Report Type: Spontaneous
  Country: US (occurrence: US)
  Receive Date: 20130809
  Receipt Date: 20151013
  Transmission Date: 20160305
  Serious: No
  Sender: FDA-Public Use
  Company Number: US-AMGEN-USASP2012062138

PATIENT
  Age: 24 Year
  Sex: Male

DRUGS (2)
  1. VYVANSE [Concomitant]
     Active Substance: LISDEXAMFETAMINE DIMESYLATE
     Dosage: 60 MG, UNK
  2. NEUPOGEN [Suspect]
     Active Substance: FILGRASTIM
     Indication: BONE MARROW DONATION
     Dosage: UNK

REACTIONS (1)
  - Back pain [Not Recovered/Not Resolved]

NARRATIVE: CASE EVENT DATE: 20120929
